FAERS Safety Report 7865970-8 (Version None)
Quarter: 2011Q4

REPORT INFORMATION
  Report Type: 
  Country: None (occurrence: None)
  Receive Date: 20111028
  Receipt Date: 20110330
  Transmission Date: 20120403
  Serious: No
  Sender: FDA-Public Use
  Company Number: US-GLAXOSMITHKLINE-A0920721A

PATIENT
  Age: 80 Year
  Sex: Male

DRUGS (7)
  1. WARFARIN SODIUM [Concomitant]
  2. ADVAIR DISKUS 100/50 [Suspect]
     Indication: DYSPNOEA
     Dosage: 1PUFF TWICE PER DAY
     Route: 055
     Dates: start: 20060101
  3. VITAMIN TAB [Concomitant]
  4. FISH OIL [Concomitant]
  5. SIMVASTATIN [Concomitant]
  6. UNKNOWN MEDICATION [Concomitant]
  7. NEBULIZER [Concomitant]

REACTIONS (1)
  - ORAL PAIN [None]
